FAERS Safety Report 23715092 (Version 1)
Quarter: 2024Q2

REPORT INFORMATION
  Report Type: Spontaneous
  Country: CA (occurrence: CA)
  Receive Date: 20240406
  Receipt Date: 20240406
  Transmission Date: 20240716
  Serious: Yes (Other)
  Sender: FDA-Public Use
  Company Number: CA-Ascend Therapeutics US, LLC-2155275

PATIENT
  Age: 33 Year
  Sex: Female

DRUGS (2)
  1. ANDROGEL [Suspect]
     Active Substance: TESTOSTERONE
     Indication: Transgender hormonal therapy
     Route: 065
  2. TESTOSTERONE [Suspect]
     Active Substance: TESTOSTERONE
     Route: 065

REACTIONS (2)
  - Endometrial adenocarcinoma [Unknown]
  - Off label use [Unknown]
